FAERS Safety Report 7493350-6 (Version None)
Quarter: 2011Q2

REPORT INFORMATION
  Report Type: 
  Country: None (occurrence: None)
  Receive Date: 20110520
  Receipt Date: 20110516
  Transmission Date: 20111010
  Serious: Yes (Hospitalization, Other)
  Sender: FDA-Public Use
  Company Number: US-PFIZER INC-2011038404

PATIENT
  Sex: Male

DRUGS (4)
  1. CHANTIX [Suspect]
     Indication: SMOKING CESSATION THERAPY
     Dosage: STARTER + CONTINUOUS PACK
     Dates: start: 20090505, end: 20090601
  2. BENADRYL [Concomitant]
     Indication: INSOMNIA
     Dosage: UNK
     Dates: start: 20080101
  3. VALIUM [Concomitant]
     Indication: INSOMNIA
     Dosage: UNK
     Dates: start: 20080101
  4. CLONIDINE [Concomitant]
     Indication: INSOMNIA
     Dosage: UNK
     Dates: start: 20080101

REACTIONS (7)
  - POST-TRAUMATIC STRESS DISORDER [None]
  - ANXIETY [None]
  - INTENTIONAL OVERDOSE [None]
  - SUICIDE ATTEMPT [None]
  - DEPRESSION [None]
  - BIPOLAR DISORDER [None]
  - AGGRESSION [None]
